FAERS Safety Report 5178081-X (Version None)
Quarter: 2006Q4

REPORT INFORMATION
  Report Type: 
  Country: None (occurrence: None)
  Receive Date: 20061218
  Receipt Date: 20060731
  Transmission Date: 20070319
  Serious: No
  Sender: FDA-Public Use
  Company Number: US-AMGEN-KDL188430

PATIENT
  Sex: Female

DRUGS (10)
  1. ENBREL [Suspect]
     Indication: DRUG USE FOR UNKNOWN INDICATION
     Route: 058
     Dates: start: 20060501
  2. PROTONIX [Concomitant]
  3. NIFEDIPINE [Concomitant]
  4. PREDNISONE TAB [Concomitant]
  5. CARISOPRODOL [Concomitant]
  6. NORCO [Concomitant]
  7. GABAPENTIN [Concomitant]
  8. MAXZIDE [Concomitant]
  9. REGLAN [Concomitant]
  10. METHOTREXATE [Concomitant]

REACTIONS (1)
  - INJECTION SITE REACTION [None]
